FAERS Safety Report 10173987 (Version 1)
Quarter: 2014Q2

REPORT INFORMATION
  Report Type: Report from Study
  Country: AU (occurrence: None)
  Receive Date: 20140513
  Receipt Date: 20140513
  Transmission Date: 20141212
  Serious: Yes (Other)
  Sender: FDA-Public Use
  Company Number: 2014-19477

PATIENT
  Age: 90 Year
  Sex: Male

DRUGS (2)
  1. EYELEA [Suspect]
     Indication: AGE-RELATED MACULAR DEGENERATION
     Route: 031
     Dates: start: 20121210
  2. EYELEA [Suspect]
     Route: 031
     Dates: start: 20121210

REACTIONS (1)
  - Gastric cancer [None]
